FAERS Safety Report 8502979-5 (Version None)
Quarter: 2012Q3

REPORT INFORMATION
  Report Type: 
  Country: None (occurrence: None)
  Receive Date: 20120711
  Receipt Date: 20120703
  Transmission Date: 20120928
  Serious: Yes (Other)
  Sender: FDA-Public Use
  Company Number: PHEH2012US013242

PATIENT
  Sex: Female

DRUGS (2)
  1. NEXAVAR [Concomitant]
  2. AFINITOR [Suspect]
     Indication: RENAL CELL CARCINOMA
     Dosage: 10 MG, QD
     Route: 048
     Dates: start: 20120606

REACTIONS (10)
  - TRIGGER FINGER [None]
  - CONCOMITANT DISEASE AGGRAVATED [None]
  - DIARRHOEA [None]
  - STOMATITIS [None]
  - ORAL MUCOSAL BLISTERING [None]
  - HEADACHE [None]
  - CENTRAL NERVOUS SYSTEM LESION [None]
  - FATIGUE [None]
  - NAUSEA [None]
  - ASTHENIA [None]
